FAERS Safety Report 4284021-8 (Version None)
Quarter: 2004Q1

REPORT INFORMATION
  Report Type: 
  Country: None (occurrence: None)
  Receive Date: 20040130
  Receipt Date: 20040127
  Transmission Date: 20041129
  Serious: No
  Sender: FDA-Public Use
  Company Number: US-JNJFOC-20040100128

PATIENT
  Sex: Male

DRUGS (1)
  1. TOPAMAX [Suspect]
     Indication: CONVULSION
     Dosage: ORAL
     Route: 048

REACTIONS (3)
  - CONVULSION [None]
  - FALL [None]
  - RIB FRACTURE [None]
